FAERS Safety Report 11565052 (Version 1)
Quarter: 2015Q3

REPORT INFORMATION
  Report Type: Spontaneous
  Country: US (occurrence: US)
  Receive Date: 20150916
  Receipt Date: 20150916
  Transmission Date: 20151125
  Serious: No
  Sender: FDA-Public Use
  Company Number: US-ELI_LILLY_AND_COMPANY-US200904002729

PATIENT
  Age: 37 Year
  Sex: Female

DRUGS (2)
  1. FORTEO [Suspect]
     Active Substance: TERIPARATIDE
  2. ADALIMUMAB [Concomitant]
     Active Substance: ADALIMUMAB

REACTIONS (4)
  - Nausea [Recovered/Resolved]
  - Injection site pain [Unknown]
  - Vomiting [Recovered/Resolved]
  - Drug interaction [Unknown]
